FAERS Safety Report 8018652-6 (Version None)
Quarter: 2012Q1

REPORT INFORMATION
  Report Type: 
  Country: None (occurrence: None)
  Receive Date: 20120103
  Receipt Date: 20120103
  Transmission Date: 20120608
  Serious: Yes (Other)
  Sender: FDA-Public Use
  Company Number: None

PATIENT
  Age: 38 Year
  Sex: Male
  Weight: 88 kg

DRUGS (1)
  1. PROPECIA [Suspect]
     Indication: ANDROGENETIC ALOPECIA
     Dosage: 1MG
     Route: 048

REACTIONS (10)
  - EJACULATION FAILURE [None]
  - PALPITATIONS [None]
  - ANXIETY [None]
  - FATIGUE [None]
  - ERECTILE DYSFUNCTION [None]
  - ALOPECIA [None]
  - SEXUAL DYSFUNCTION [None]
  - MUSCLE ATROPHY [None]
  - GENERAL PHYSICAL HEALTH DETERIORATION [None]
  - LOSS OF LIBIDO [None]
